FAERS Safety Report 6818764-6 (Version None)
Quarter: 2010Q3

REPORT INFORMATION
  Report Type: 
  Country: None (occurrence: None)
  Receive Date: 20100701
  Receipt Date: 20100622
  Transmission Date: 20110219
  Serious: Yes (Other)
  Sender: FDA-Public Use
  Company Number: 2010SP023288

PATIENT
  Age: 34 Year
  Sex: Female
  Weight: 97.5234 kg

DRUGS (7)
  1. NUVARING [Suspect]
     Indication: CONTRACEPTION
     Dates: start: 20090402, end: 20091115
  2. OMEPRAZOLE [Concomitant]
  3. WELLBUTRIN [Concomitant]
  4. SPIRONOLACTONE [Concomitant]
  5. PROTONIX [Concomitant]
  6. MENTAX [Concomitant]
  7. VITAMINS [Concomitant]

REACTIONS (5)
  - ABDOMINAL PAIN [None]
  - AMENORRHOEA [None]
  - ASTHMA [None]
  - METRORRHAGIA [None]
  - URINARY TRACT INFECTION [None]
